FAERS Safety Report 4557179-0 (Version None)
Quarter: 2005Q1

REPORT INFORMATION
  Report Type: 
  Country: None (occurrence: None)
  Receive Date: 20050118
  Receipt Date: 20050113
  Transmission Date: 20050727
  Serious: Yes (Hospitalization)
  Sender: FDA-Public Use
  Company Number: USA-2005-0018317

PATIENT
  Age: 6 Year
  Sex: Female

DRUGS (4)
  1. CEFDITOREN PIVOXIL (SIMILAR TO NDA 21-222)( CEFDITOREN PIVOXIL) [Suspect]
     Indication: PHARYNGITIS
     Dosage: 260 MG, TID, ORAL
     Route: 048
     Dates: start: 20041029, end: 20041031
  2. PERIACTIN [Suspect]
     Indication: PHARYNGITIS
     Dosage: 0.6 GRAM, TID, ORAL
     Route: 048
     Dates: start: 20041029, end: 20041031
  3. ASVERIN (TIPEPIDINE HIBENZATE) [Suspect]
     Indication: PHARYNGITIS
     Dosage: 0.6 GRAM, TID, ORAL
     Route: 048
     Dates: start: 20041029, end: 20041031
  4. MUCODYNE (CARBOCISTEINE) [Concomitant]
     Indication: PHARYNGITIS
     Dosage: 1.5 GRAM, TID, ORAL
     Route: 048
     Dates: start: 20041029, end: 20041031

REACTIONS (11)
  - DRUG ERUPTION [None]
  - GENERALISED ERYTHEMA [None]
  - GRAFT VERSUS HOST DISEASE [None]
  - HEPATITIS [None]
  - JAUNDICE CHOLESTATIC [None]
  - LEUKODERMA [None]
  - PIGMENTATION DISORDER [None]
  - PURPURA [None]
  - RASH ERYTHEMATOUS [None]
  - WHITE BLOOD CELL COUNT DECREASED [None]
  - WHITE BLOOD CELL COUNT INCREASED [None]
